FAERS Safety Report 25676255 (Version 1)
Quarter: 2025Q3

REPORT INFORMATION
  Report Type: Spontaneous
  Country: US (occurrence: None)
  Receive Date: 20250813
  Receipt Date: 20250813
  Transmission Date: 20251020
  Serious: No
  Sender: FDA-CTU
  Company Number: None

PATIENT
  Age: 25 Year
  Sex: Female
  Weight: 54 kg

DRUGS (3)
  1. STANNOUS FLUORIDE [Suspect]
     Active Substance: STANNOUS FLUORIDE
     Indication: Dental cleaning
     Dosage: OTHER QUANTITY : 6.0 OUNCE(S);?FREQUENCY : TWICE A DAY;?STRENGTH: 0.24% SODIUM FLUORIDE (1100 PPM % PERCENT
     Route: 048
     Dates: start: 20250720, end: 20250811
  2. MAGNESIUM [Concomitant]
     Active Substance: MAGNESIUM
  3. MATRICARIA RECUTITA [Concomitant]
     Active Substance: MATRICARIA RECUTITA

REACTIONS (7)
  - Oral disorder [None]
  - Application site irritation [None]
  - Application site pain [None]
  - Application site swelling [None]
  - Adverse drug reaction [None]
  - Gingival disorder [None]
  - Oral pain [None]

NARRATIVE: CASE EVENT DATE: 20250811
